FAERS Safety Report 10149470 (Version 3)
Quarter: 2015Q2

REPORT INFORMATION
  Report Type: Spontaneous
  Country: US (occurrence: None)
  Receive Date: 20140430
  Receipt Date: 20150630
  Transmission Date: 20150821
  Serious: Yes (Hospitalization)
  Sender: FDA-Public Use
  Company Number: US-000919

PATIENT
  Age: 53 Year
  Sex: Male

DRUGS (13)
  1. IRON [Concomitant]
     Active Substance: IRON
  2. CELLCEPT [Concomitant]
     Active Substance: MYCOPHENOLATE MOFETIL\MYCOPHENOLATE MOFETIL HYDROCHLORIDE
  3. CITRACAL [Concomitant]
     Active Substance: CALCIUM CITRATE
  4. ENTOCORT EC [Concomitant]
     Active Substance: BUDESONIDE
  5. LACTATED RINGERS [Concomitant]
     Active Substance: CALCIUM CHLORIDE\POTASSIUM CHLORIDE\SODIUM CHLORIDE\SODIUM LACTATE
  6. HUMIRA [Concomitant]
     Active Substance: ADALIMUMAB
  7. VITAMIN D [Concomitant]
     Active Substance: CHOLECALCIFEROL
  8. VITAMIN B12 [Concomitant]
     Active Substance: CYANOCOBALAMIN
  9. ACYCLOVIR. [Concomitant]
     Active Substance: ACYCLOVIR
  10. SOLUTIONS FOR PARENTERAL NUTRITION [Concomitant]
     Active Substance: AMINO ACIDS\DEXTROSE\ELECTROLYTES NOS
  11. GATTEX [Suspect]
     Active Substance: TEDUGLUTIDE\WATER
     Indication: SHORT-BOWEL SYNDROME
     Dosage: 0.32 ML QD, STREN/VOLUM: 0.32ML/FREQU: ONCE A DAY SUBCUTANEOUS)
     Route: 058
     Dates: start: 20130709
  12. PROGRAFT [Concomitant]
     Active Substance: TACROLIMUS
  13. MULTIVITAMINS [Concomitant]
     Active Substance: VITAMINS

REACTIONS (3)
  - Injection site urticaria [None]
  - Flatulence [None]
  - Dysgeusia [None]

NARRATIVE: CASE EVENT DATE: 20130709
